FAERS Safety Report 6306908-4 (Version None)
Quarter: 2009Q3

REPORT INFORMATION
  Report Type: 
  Country: None (occurrence: None)
  Receive Date: 20090811
  Receipt Date: 20090811
  Transmission Date: 20100115
  Serious: Yes (Disabling)
  Sender: FDA-Public Use
  Company Number: None

PATIENT
  Age: 57 Year
  Sex: Female
  Weight: 59.8748 kg

DRUGS (1)
  1. XYZAL [Suspect]
     Indication: SEASONAL ALLERGY
     Dosage: 1 TABLET PER DAY PO
     Route: 048
     Dates: start: 20090508, end: 20090801

REACTIONS (2)
  - POLLAKIURIA [None]
  - URINARY RETENTION [None]
